FAERS Safety Report 7536133-0 (Version None)
Quarter: 2011Q2

REPORT INFORMATION
  Report Type: 
  Country: None (occurrence: None)
  Receive Date: 20110602
  Receipt Date: 20110520
  Transmission Date: 20111010
  Serious: Yes (Death, Hospitalization)
  Sender: FDA-Public Use
  Company Number: 2010SA074084

PATIENT
  Age: 62 Year
  Sex: Male
  Weight: 73 kg

DRUGS (12)
  1. XANAX [Concomitant]
  2. FORLAX [Concomitant]
  3. CISPLATIN [Suspect]
     Indication: NON-SMALL CELL LUNG CANCER STAGE IV
     Dosage: 75 MILLIGRAM(S) /SQUARE METER; EVERY CYCLE; INTRAVENOUS DRIP
     Route: 041
     Dates: start: 20101116, end: 20101116
  4. KYTRIL [Concomitant]
  5. EMEND [Concomitant]
  6. SOLU-MEDROL [Concomitant]
  7. ZOFRAN [Concomitant]
  8. GEMCITABINE [Suspect]
     Indication: NON-SMALL CELL LUNG CANCER STAGE IV
     Dosage: 1250 MILLIGRAM(S) /SQUARE METER; WEEKLY; INTRAVENOUS DRIP
     Route: 041
     Dates: start: 20101116, end: 20101116
  9. GEMCITABINE [Suspect]
     Indication: NON-SMALL CELL LUNG CANCER STAGE IV
     Dosage: 1250 MILLIGRAM(S) /SQUARE METER; WEEKLY; INTRAVENOUS DRIP
     Route: 041
     Dates: start: 20101123, end: 20101123
  10. ACETAMINOPHEN [Concomitant]
  11. I.V. SOLUTIONS [Concomitant]
  12. NEO-CODION NN [Concomitant]

REACTIONS (2)
  - FEBRILE BONE MARROW APLASIA [None]
  - SEPTIC SHOCK [None]
